FAERS Safety Report 11715658 (Version 2)
Quarter: 2017Q1

REPORT INFORMATION
  Report Type: Spontaneous
  Country: US (occurrence: US)
  Receive Date: 20151109
  Receipt Date: 20170227
  Transmission Date: 20170428
  Serious: Yes (Other)
  Sender: FDA-Public Use
  Company Number: US-JNJFOC-20151100771

PATIENT
  Age: 12 Year
  Sex: Male

DRUGS (11)
  1. RISPERDAL [Suspect]
     Active Substance: RISPERIDONE
     Indication: DEPRESSION
     Route: 048
     Dates: start: 2006, end: 200612
  2. RISPERDAL [Suspect]
     Active Substance: RISPERIDONE
     Indication: DEPRESSION
     Dosage: VARYING DOSES OF 1 MG TO 2 MG.
     Route: 048
     Dates: start: 200705, end: 200808
  3. RISPERDAL [Suspect]
     Active Substance: RISPERIDONE
     Indication: DEPRESSION
     Dosage: VARYING DOSES OF 1 MG TO 2 MG.
     Route: 048
     Dates: start: 200601, end: 200606
  4. RISPERDAL [Suspect]
     Active Substance: RISPERIDONE
     Indication: DEPRESSION
     Dosage: VARYING DOSES OF 1 MG TO 2 MG.
     Route: 048
     Dates: start: 200510, end: 200512
  5. RISPERDAL [Suspect]
     Active Substance: RISPERIDONE
     Indication: DEPRESSION
     Route: 048
     Dates: end: 200809
  6. RISPERDAL [Suspect]
     Active Substance: RISPERIDONE
     Indication: ATTENTION DEFICIT/HYPERACTIVITY DISORDER
     Dosage: VARYING DOSES OF 1 MG TO 2 MG.
     Route: 048
     Dates: start: 200510, end: 200512
  7. RISPERIDONE. [Suspect]
     Active Substance: RISPERIDONE
     Indication: PRODUCT USED FOR UNKNOWN INDICATION
     Route: 048
  8. RISPERDAL [Suspect]
     Active Substance: RISPERIDONE
     Indication: ATTENTION DEFICIT/HYPERACTIVITY DISORDER
     Dosage: VARYING DOSES OF 1 MG TO 2 MG.
     Route: 048
     Dates: start: 200601, end: 200606
  9. RISPERDAL [Suspect]
     Active Substance: RISPERIDONE
     Indication: ATTENTION DEFICIT/HYPERACTIVITY DISORDER
     Route: 048
     Dates: start: 2006, end: 200612
  10. RISPERDAL [Suspect]
     Active Substance: RISPERIDONE
     Indication: ATTENTION DEFICIT/HYPERACTIVITY DISORDER
     Dosage: VARYING DOSES OF 1 MG TO 2 MG.
     Route: 048
     Dates: start: 200705, end: 200808
  11. RISPERDAL [Suspect]
     Active Substance: RISPERIDONE
     Indication: ATTENTION DEFICIT/HYPERACTIVITY DISORDER
     Route: 048
     Dates: end: 200809

REACTIONS (8)
  - Abnormal weight gain [Unknown]
  - Increased appetite [Unknown]
  - Enuresis [Unknown]
  - Suicidal ideation [Unknown]
  - Product use issue [Unknown]
  - Gynaecomastia [Unknown]
  - Off label use [Unknown]
  - Depression [Unknown]

NARRATIVE: CASE EVENT DATE: 200510
